FAERS Safety Report 9353952 (Version 3)
Quarter: 2014Q1

REPORT INFORMATION
  Report Type: Spontaneous
  Country: US (occurrence: US)
  Receive Date: 20130618
  Receipt Date: 20140128
  Transmission Date: 20141002
  Serious: Yes (Hospitalization)
  Sender: FDA-Public Use
  Company Number: US-BAYER-2013-075097

PATIENT
  Age: 37 Year
  Sex: Female
  Weight: 63.49 kg

DRUGS (2)
  1. GIANVI [Suspect]
     Indication: CONTRACEPTION
     Dosage: UNK
     Dates: start: 20100910, end: 20110424
  2. YAZ [Suspect]

REACTIONS (8)
  - Pulmonary embolism [None]
  - Injury [None]
  - Chest pain [None]
  - Dyspnoea [None]
  - Emotional distress [None]
  - Depression [None]
  - Fear of death [None]
  - Nervousness [None]
